FAERS Safety Report 23919866 (Version 1)
Quarter: 2024Q2

REPORT INFORMATION
  Report Type: Spontaneous
  Country: US (occurrence: None)
  Receive Date: 20240529
  Receipt Date: 20240529
  Transmission Date: 20240716
  Serious: Yes (Hospitalization)
  Sender: FDA-Public Use
  Company Number: None

PATIENT
  Age: 59 Year
  Sex: Male
  Weight: 104.7 kg

DRUGS (15)
  1. CETUXIMAB [Suspect]
     Active Substance: CETUXIMAB
     Indication: Squamous cell carcinoma
     Dosage: 1200 MG EVERY 2 WEEKS INTRAVENOUS DRIP?
     Route: 041
     Dates: start: 20240513, end: 20240513
  2. ACETAMINOPHEN [Concomitant]
     Active Substance: ACETAMINOPHEN
  3. CARVEDILOL [Concomitant]
     Active Substance: CARVEDILOL
  4. DEXAMETHASONE [Concomitant]
     Active Substance: DEXAMETHASONE
  5. FENTANYL [Concomitant]
     Active Substance: FENTANYL\FENTANYL CITRATE
  6. GABAPENTIN [Concomitant]
     Active Substance: GABAPENTIN
  7. LOSARTAN [Concomitant]
     Active Substance: LOSARTAN
  8. AUGMENTIN [Concomitant]
     Active Substance: AMOXICILLIN\CLAVULANATE POTASSIUM
  9. NUTREN 2.0 [Concomitant]
  10. OXYCODONE [Concomitant]
     Active Substance: OXYCODONE\OXYCODONE HYDROCHLORIDE
  11. SULFAMETHOXAZOLE\TRIMETHOPRIM [Concomitant]
     Active Substance: SULFAMETHOXAZOLE\TRIMETHOPRIM
  12. SODIUM CHLORIDE [Concomitant]
     Active Substance: SODIUM CHLORIDE
  13. DIPHENHYDRAMINE [Concomitant]
     Active Substance: DIPHENHYDRAMINE
  14. FAMOTIDINE [Concomitant]
     Active Substance: FAMOTIDINE
  15. ALBUTEROL [Concomitant]
     Active Substance: ALBUTEROL

REACTIONS (9)
  - Flushing [None]
  - Throat irritation [None]
  - Hyperhidrosis [None]
  - Tachycardia [None]
  - Hypersensitivity [None]
  - Hypertension [None]
  - Infusion related reaction [None]
  - Swelling face [None]
  - Wheezing [None]

NARRATIVE: CASE EVENT DATE: 20240513
